FAERS Safety Report 15034604 (Version 1)
Quarter: 2018Q2

REPORT INFORMATION
  Report Type: Spontaneous
  Country: US (occurrence: US)
  Receive Date: 20180620
  Receipt Date: 20180620
  Transmission Date: 20180711
  Serious: No
  Sender: FDA-Public Use
  Company Number: US-TEVA-2018-US-901491

PATIENT
  Sex: Female

DRUGS (1)
  1. QVAR [Suspect]
     Active Substance: BECLOMETHASONE DIPROPIONATE
     Indication: DYSPNOEA
     Dosage: 2 DOSAGE FORMS DAILY;
     Route: 065
     Dates: start: 20180525

REACTIONS (3)
  - Drug ineffective [Unknown]
  - Malaise [Unknown]
  - Device malfunction [Unknown]
